FAERS Safety Report 21302790 (Version 1)
Quarter: 2022Q3

REPORT INFORMATION
  Report Type: Spontaneous
  Country: US (occurrence: None)
  Receive Date: 20220907
  Receipt Date: 20220907
  Transmission Date: 20221027
  Serious: Yes (Hospitalization)
  Sender: FDA-Public Use
  Company Number: None

PATIENT
  Sex: Male
  Weight: 77 kg

DRUGS (5)
  1. CARBOPLATIN [Suspect]
     Active Substance: CARBOPLATIN
     Dates: end: 20220815
  2. ETOPOSIDE [Suspect]
     Active Substance: ETOPOSIDE
     Dates: end: 20220815
  3. FILGRASTIM [Suspect]
     Active Substance: FILGRASTIM
     Dates: end: 20220818
  4. IFOSFAMIDE [Suspect]
     Active Substance: IFOSFAMIDE
     Dates: end: 20220710
  5. TAXOL [Suspect]
     Active Substance: PACLITAXEL
     Dates: end: 20220708

REACTIONS (4)
  - Disease progression [None]
  - Seizure [None]
  - Cerebral haemorrhage [None]
  - Metastases to central nervous system [None]

NARRATIVE: CASE EVENT DATE: 20220902
